FAERS Safety Report 8097607-X (Version None)
Quarter: 2012Q1

REPORT INFORMATION
  Report Type: 
  Country: None (occurrence: None)
  Receive Date: 20120128
  Receipt Date: 20110701
  Transmission Date: 20120608
  Serious: No
  Sender: FDA-Public Use
  Company Number: US-ABBOTT-11P-163-0836471-00

PATIENT
  Sex: Female

DRUGS (8)
  1. METOPROLOL BETA BLOCKER [Concomitant]
     Indication: HEART RATE IRREGULAR
  2. PREDNISONE TAB [Concomitant]
     Indication: RHEUMATOID ARTHRITIS
  3. OMEPRAZOLE [Concomitant]
     Indication: GASTROOESOPHAGEAL REFLUX DISEASE
  4. CELEBREX [Concomitant]
     Indication: ARTHRITIS
  5. LISINOPRIL [Concomitant]
     Indication: BLOOD PRESSURE INCREASED
     Dosage: 1/2 TABLET DAILY
  6. LORAZEPAM [Concomitant]
     Indication: ANXIETY
  7. HUMIRA [Suspect]
     Indication: RHEUMATOID ARTHRITIS
     Dates: start: 20100718
  8. METHOTREXATE [Concomitant]
     Indication: RHEUMATOID ARTHRITIS

REACTIONS (4)
  - HYPOAESTHESIA [None]
  - PARAESTHESIA [None]
  - CARPAL TUNNEL SYNDROME [None]
  - PAIN IN EXTREMITY [None]
